FAERS Safety Report 7109149-6 (Version None)
Quarter: 2010Q4

REPORT INFORMATION
  Report Type: 
  Country: None (occurrence: None)
  Receive Date: 20101117
  Receipt Date: 20101109
  Transmission Date: 20110411
  Serious: Yes (Death, Other)
  Sender: FDA-Public Use
  Company Number: GB-PFIZER INC-2010146558

PATIENT
  Age: 54 Year
  Sex: Female

DRUGS (2)
  1. IBUPROFEN [Suspect]
     Dosage: UNK
  2. THEOPHYLLINE [Concomitant]
     Dosage: 31.3 MG/L, UNK

REACTIONS (4)
  - CARDIAC ARREST [None]
  - LETHARGY [None]
  - OVERDOSE [None]
  - TACHYCARDIA [None]
